FAERS Safety Report 6541196-5 (Version None)
Quarter: 2010Q1

REPORT INFORMATION
  Report Type: 
  Country: None (occurrence: None)
  Receive Date: 20100118
  Receipt Date: 20100113
  Transmission Date: 20100710
  Serious: Yes (Hospitalization)
  Sender: FDA-Public Use
  Company Number: B0626091A

PATIENT
  Sex: Female
  Weight: 70 kg

DRUGS (5)
  1. LAPATINIB [Suspect]
     Indication: BREAST CANCER
     Dosage: 1250MG PER DAY
     Route: 048
     Dates: start: 20091015, end: 20100110
  2. EPIRUBICIN [Suspect]
     Indication: BREAST CANCER
     Dosage: 155.5MG EVERY 3 WEEKS
     Route: 042
     Dates: start: 20091015, end: 20091217
  3. CYCLOPHOSPHAMIDE [Suspect]
     Indication: BREAST CANCER
     Dosage: 1038MG EVERY 3 WEEKS
     Route: 042
     Dates: start: 20091015, end: 20091217
  4. DOCETAXEL [Suspect]
     Indication: BREAST CANCER
     Dosage: 173MG EVERY 3 WEEKS
     Route: 042
     Dates: start: 20100107
  5. NEBILET [Concomitant]
     Dosage: .5TAB PER DAY
     Dates: start: 19870101

REACTIONS (1)
  - ARTHRALGIA [None]
